FAERS Safety Report 7489594-X (Version None)
Quarter: 2011Q2

REPORT INFORMATION
  Report Type: 
  Country: None (occurrence: None)
  Receive Date: 20110519
  Receipt Date: 20110509
  Transmission Date: 20111010
  Serious: Yes (Hospitalization)
  Sender: FDA-Public Use
  Company Number: US-BIOGENIDEC-2011BI016939

PATIENT
  Age: 57 Year
  Sex: Female

DRUGS (3)
  1. SYNTHROID [Concomitant]
     Indication: THYROID DISORDER
  2. NEXIUM [Concomitant]
     Indication: GASTROOESOPHAGEAL REFLUX DISEASE
     Dates: start: 20000101
  3. AVONEX [Suspect]
     Indication: MULTIPLE SCLEROSIS
     Route: 030
     Dates: start: 20040506

REACTIONS (5)
  - SEASONAL ALLERGY [None]
  - CHEST DISCOMFORT [None]
  - EXTRASYSTOLES [None]
  - CARDIAC FLUTTER [None]
  - ANGINA PECTORIS [None]
